FAERS Safety Report 15700267 (Version 2)
Quarter: 2019Q1

REPORT INFORMATION
  Report Type: Spontaneous
  Country: RO (occurrence: RO)
  Receive Date: 20181207
  Receipt Date: 20190116
  Transmission Date: 20190417
  Serious: Yes (Life-Threatening, Hospitalization)
  Sender: FDA-Public Use
  Company Number: RO-JNJFOC-20181204343

PATIENT
  Age: 48 Year
  Sex: Female

DRUGS (3)
  1. BETALOC [Suspect]
     Active Substance: METOPROLOL TARTRATE
     Indication: DEPRESSION
     Route: 065
  2. RIVOTRIL [Suspect]
     Active Substance: CLONAZEPAM
     Indication: DEPRESSION
     Route: 065
  3. CONCERTA [Suspect]
     Active Substance: METHYLPHENIDATE HYDROCHLORIDE
     Indication: DEPRESSION
     Route: 048

REACTIONS (2)
  - Intentional overdose [Recovered/Resolved]
  - Coma [Recovered/Resolved]
